FAERS Safety Report 4757137-7 (Version None)
Quarter: 2005Q3

REPORT INFORMATION
  Report Type: 
  Country: None (occurrence: None)
  Receive Date: 20050831
  Receipt Date: 20050819
  Transmission Date: 20060218
  Serious: Yes (Death, Hospitalization)
  Sender: FDA-Public Use
  Company Number: JP-BRISTOL-MYERS SQUIBB COMPANY-13084694

PATIENT
  Age: 75 Year
  Sex: Female

DRUGS (5)
  1. TAXOL [Suspect]
     Indication: BREAST CANCER
     Route: 042
     Dates: start: 20050329, end: 20050412
  2. CODEINE PHOSPHATE [Concomitant]
     Route: 048
     Dates: start: 20050329, end: 20050419
  3. DIPHENHYDRAMINE HCL [Concomitant]
     Route: 048
     Dates: start: 20050329, end: 20050412
  4. DEXAMETHASONE SODIUM PHOSPHATE [Concomitant]
     Route: 042
     Dates: start: 20050329, end: 20050412
  5. RANITIDINE HCL [Concomitant]
     Route: 042
     Dates: start: 20050329, end: 20050412

REACTIONS (1)
  - INTERSTITIAL LUNG DISEASE [None]
